FAERS Safety Report 14076973 (Version 3)
Quarter: 2018Q1

REPORT INFORMATION
  Report Type: Report from Study
  Country: TW (occurrence: TW)
  Receive Date: 20171011
  Receipt Date: 20180109
  Transmission Date: 20180508
  Serious: Yes (Life-Threatening, Hospitalization, Other)
  Sender: FDA-Public Use
  Company Number: TW-BRISTOL-MYERS SQUIBB COMPANY-BMS-2017-083706

PATIENT
  Age: 82 Year
  Sex: Female

DRUGS (1)
  1. ABATACEPT [Suspect]
     Active Substance: ABATACEPT
     Indication: RHEUMATOID ARTHRITIS
     Dosage: 500 MG, QMO
     Route: 042
     Dates: start: 20170519, end: 20170825

REACTIONS (9)
  - Tumour invasion [Recovering/Resolving]
  - Asthenia [Unknown]
  - Intervertebral disc degeneration [Unknown]
  - Decreased appetite [Unknown]
  - Colon cancer [Recovering/Resolving]
  - Metastases to liver [Recovering/Resolving]
  - Intervertebral disc protrusion [Recovering/Resolving]
  - Pyrexia [Unknown]
  - Urinary tract infection [Recovering/Resolving]

NARRATIVE: CASE EVENT DATE: 20171007
